FAERS Safety Report 22352670 (Version 1)
Quarter: 2023Q2

REPORT INFORMATION
  Report Type: Spontaneous
  Country: ES (occurrence: ES)
  Receive Date: 20230523
  Receipt Date: 20230523
  Transmission Date: 20230722
  Serious: Yes (Hospitalization)
  Sender: FDA-Public Use
  Company Number: None

PATIENT
  Age: 40 Year
  Sex: Female
  Weight: 67 kg

DRUGS (1)
  1. VUMERITY [Suspect]
     Active Substance: DIROXIMEL FUMARATE
     Indication: Relapsing-remitting multiple sclerosis
     Dosage: 2 CP/12H
     Route: 050
     Dates: start: 20221201, end: 20230315

REACTIONS (1)
  - Tubulointerstitial nephritis and uveitis syndrome [Not Recovered/Not Resolved]

NARRATIVE: CASE EVENT DATE: 20221204
